FAERS Safety Report 11139595 (Version 2)
Quarter: 2015Q2

REPORT INFORMATION
  Report Type: Spontaneous
  Country: JP (occurrence: JP)
  Receive Date: 20150527
  Receipt Date: 20150630
  Transmission Date: 20150821
  Serious: Yes (Life-Threatening)
  Sender: FDA-Public Use
  Company Number: JP-GALDERMA-JP15002957

PATIENT
  Age: 91 Year
  Sex: Male
  Weight: 63.4 kg

DRUGS (3)
  1. AMARYL [Interacting]
     Active Substance: GLIMEPIRIDE
     Indication: DIABETES MELLITUS
     Route: 048
     Dates: start: 20140401, end: 20150513
  2. EQUA [Concomitant]
     Active Substance: VILDAGLIPTIN
     Indication: DIABETES MELLITUS
     Route: 048
     Dates: start: 20140401
  3. ROZEX (METRONIDAZOLE) [Suspect]
     Active Substance: METRONIDAZOLE
     Indication: PRODUCT USED FOR UNKNOWN INDICATION
     Dosage: 0.75%
     Route: 061
     Dates: start: 20150512, end: 20150513

REACTIONS (2)
  - Drug interaction [Recovered/Resolved]
  - Hypoglycaemia [Recovered/Resolved]

NARRATIVE: CASE EVENT DATE: 20150513
